FAERS Safety Report 15695136 (Version 1)
Quarter: 2018Q4

REPORT INFORMATION
  Report Type: Spontaneous
  Country: US (occurrence: US)
  Receive Date: 20181126
  Receipt Date: 20181126
  Transmission Date: 20190205
  Serious: Yes (Hospitalization)
  Sender: FDA-Public Use
  Company Number: None

PATIENT
  Age: 47 Year
  Sex: Female

DRUGS (12)
  1. OXYCODONE [Concomitant]
     Active Substance: OXYCODONE
  2. FUROSEMIDE. [Concomitant]
     Active Substance: FUROSEMIDE
  3. TOBRAMYCIN. [Suspect]
     Active Substance: TOBRAMYCIN
     Indication: ACUTE RESPIRATORY FAILURE
     Route: 055
     Dates: start: 20181108
  4. BUMETANIDE. [Concomitant]
     Active Substance: BUMETANIDE
  5. SERTRALINE [Concomitant]
     Active Substance: SERTRALINE HYDROCHLORIDE
  6. AMITRYPTILINE [Concomitant]
     Active Substance: AMITRIPTYLINE
  7. OXYCONTIN [Concomitant]
     Active Substance: OXYCODONE HYDROCHLORIDE
  8. POT CHLORIDE [Concomitant]
     Active Substance: POTASSIUM CHLORIDE
  9. KLOR [Concomitant]
  10. METOLAZONE. [Concomitant]
     Active Substance: METOLAZONE
  11. PYRIDOSTIGM [Concomitant]
  12. TOBRAMYCIN. [Suspect]
     Active Substance: TOBRAMYCIN
     Indication: HYPERCAPNIA
     Route: 055
     Dates: start: 20181108

REACTIONS (1)
  - Infection [None]

NARRATIVE: CASE EVENT DATE: 20181123
